FAERS Safety Report 9437545 (Version 1)
Quarter: 2013Q3

REPORT INFORMATION
  Report Type: Report from Study
  Country: US (occurrence: US)
  Receive Date: 20130802
  Receipt Date: 20130802
  Transmission Date: 20140515
  Serious: Yes (Hospitalization)
  Sender: FDA-Public Use
  Company Number: US-ABBOTT-13P-163-1125804-00

PATIENT
  Age: 14 Year
  Sex: Female
  Weight: 44.04 kg

DRUGS (5)
  1. CREON [Suspect]
     Indication: CYSTIC FIBROSIS
     Dosage: 3 CAPS WITH MEALS + 2 CAPS WITH SNACKS
     Route: 048
     Dates: start: 201009
  2. CREON [Suspect]
     Indication: PANCREATIC INSUFFICIENCY
  3. ALBUTEROL [Concomitant]
     Indication: PRODUCT USED FOR UNKNOWN INDICATION
  4. PULMOZYME [Concomitant]
     Indication: PRODUCT USED FOR UNKNOWN INDICATION
  5. UNKNOWN CONCOMITANT MEDICATIONS [Concomitant]

REACTIONS (2)
  - Lung infection [Recovering/Resolving]
  - Pulmonary function test decreased [Not Recovered/Not Resolved]
